FAERS Safety Report 4848594-6 (Version None)
Quarter: 2005Q4

REPORT INFORMATION
  Report Type: 
  Country: None (occurrence: None)
  Receive Date: 20051206
  Receipt Date: 20051130
  Transmission Date: 20060501
  Serious: Yes (Death)
  Sender: FDA-Public Use
  Company Number: 2005-135231-NL

PATIENT
  Age: 59 Year
  Sex: Male

DRUGS (1)
  1. MIRTAZAPINE [Suspect]
     Indication: PANIC ATTACK
     Dates: start: 20050701, end: 20050701

REACTIONS (3)
  - COMPLETED SUICIDE [None]
  - OVERDOSE [None]
  - SELF-MEDICATION [None]
